FAERS Safety Report 4764751-1 (Version None)
Quarter: 2005Q3

REPORT INFORMATION
  Report Type: 
  Country: None (occurrence: None)
  Receive Date: 20050909
  Receipt Date: 20050901
  Transmission Date: 20060218
  Serious: Yes (Hospitalization)
  Sender: FDA-Public Use
  Company Number: NO-MERCK-0509NOR00001

PATIENT
  Age: 70 Year
  Sex: Male

DRUGS (1)
  1. VIOXX [Suspect]
     Indication: OSTEOARTHRITIS
     Route: 065
     Dates: start: 19980101, end: 20041107

REACTIONS (2)
  - ANGINA PECTORIS [None]
  - MYOCARDIAL INFARCTION [None]
